FAERS Safety Report 4551177-9 (Version None)
Quarter: 2005Q1

REPORT INFORMATION
  Report Type: 
  Country: None (occurrence: None)
  Receive Date: 20050111
  Receipt Date: 20041229
  Transmission Date: 20050727
  Serious: Yes (Hospitalization)
  Sender: FDA-Public Use
  Company Number: 2005-BP-00185BP

PATIENT
  Sex: Female

DRUGS (2)
  1. COMBIVENT [Suspect]
     Indication: CHRONIC OBSTRUCTIVE PULMONARY DISEASE
     Dosage: 10 PUF (SEE TEXT, 18/103 MCH), IH
     Route: 055
     Dates: start: 20020101
  2. FLOVENT [Concomitant]

REACTIONS (1)
  - ABDOMINAL OPERATION [None]
